FAERS Safety Report 5321918-1 (Version None)
Quarter: 2007Q2

REPORT INFORMATION
  Report Type: 
  Country: None (occurrence: None)
  Receive Date: 20070508
  Receipt Date: 20070508
  Transmission Date: 20071010
  Serious: Yes (Hospitalization)
  Sender: FDA-Public Use
  Company Number: None

PATIENT
  Sex: Male
  Weight: 85.26 kg

DRUGS (4)
  1. PLAVIX [Suspect]
     Indication: CORONARY ANGIOPLASTY
     Dosage: 75MG DAILY PO
     Route: 048
     Dates: start: 20060401, end: 20070122
  2. PLAVIX [Suspect]
     Indication: CORONARY ARTERY DISEASE
     Dosage: 75MG DAILY PO
     Route: 048
     Dates: start: 20060401, end: 20070122
  3. PLAVIX [Suspect]
     Indication: STENT PLACEMENT
     Dosage: 75MG DAILY PO
     Route: 048
     Dates: start: 20060401, end: 20070122
  4. ASPIRIN [Suspect]
     Indication: STENT PLACEMENT
     Dosage: 81MG DAILY PO
     Route: 048
     Dates: end: 20070122

REACTIONS (2)
  - CHEST PAIN [None]
  - ELECTROCARDIOGRAM ST SEGMENT ELEVATION [None]
